FAERS Safety Report 12720895 (Version 1)
Quarter: 2016Q3

REPORT INFORMATION
  Report Type: Spontaneous
  Country: US (occurrence: US)
  Receive Date: 20160906
  Receipt Date: 20160906
  Transmission Date: 20161109
  Serious: Yes (Hospitalization, Other)
  Sender: FDA-Public Use
  Company Number: None

PATIENT
  Age: 53 Year
  Sex: Male

DRUGS (2)
  1. TACROLIMUS 1MG ACCORD [Suspect]
     Active Substance: TACROLIMUS
     Indication: TRANSPLANT
     Route: 048
     Dates: start: 201509
  2. MYCOPHENOLIC ACID 360MG MYLAN [Suspect]
     Active Substance: MYCOPHENOLIC ACID
     Indication: TRANSPLANT
     Dosage: 360MG 2 TABS BID PO
     Route: 048
     Dates: start: 201509

REACTIONS (2)
  - Drug dose omission [None]
  - Renal tumour excision [None]

NARRATIVE: CASE EVENT DATE: 20160831
